FAERS Safety Report 8620282 (Version 2)
Quarter: 2012Q4

REPORT INFORMATION
  Report Type: 
  Country: US (occurrence: US)
  Receive Date: 20120618
  Receipt Date: 20121123
  Transmission Date: 20130627
  Serious: Yes (Death, Hospitalization, Other)
  Sender: FDA-Public Use
  Company Number: US-ROCHE-1077682

PATIENT
  Age: 60 Year
  Sex: Male
  Weight: 66.6 kg

DRUGS (1)
  1. RITUXIMAB [Suspect]
     Indication: CHRONIC LYMPHOCYTIC LEUKAEMIA
     Dosage: Strength: 10 mg/ml.
     Route: 042
     Dates: start: 20120502, end: 20120509

REACTIONS (5)
  - Pneumonia [Fatal]
  - Dyspnoea [Unknown]
  - Respiratory failure [Unknown]
  - Pancytopenia [Unknown]
  - Chronic lymphocytic leukaemia transformation [Unknown]
